FAERS Safety Report 7901708-3 (Version None)
Quarter: 2011Q4

REPORT INFORMATION
  Report Type: 
  Country: None (occurrence: None)
  Receive Date: 20111108
  Receipt Date: 20111025
  Transmission Date: 20120403
  Serious: Yes (Hospitalization)
  Sender: FDA-Public Use
  Company Number: US-ELI_LILLY_AND_COMPANY-US201007003881

PATIENT
  Sex: Female

DRUGS (6)
  1. FORTEO [Suspect]
     Dosage: 20 UG, QD
  2. FORTEO [Suspect]
     Indication: OSTEOPOROSIS
     Dosage: 20 UG, DAILY (1/D)
     Dates: start: 20100517
  3. FORTEO [Suspect]
     Dosage: 20 UG, QD
  4. FORTEO [Suspect]
     Dosage: 20 UG, DAILY (1/D)
  5. FORTEO [Suspect]
     Dosage: 20 UG, DAILY (1/D)
  6. FORTEO [Suspect]
     Dosage: 20 UG, DAILY (1/D)

REACTIONS (11)
  - FATIGUE [None]
  - NAUSEA [None]
  - GAIT DISTURBANCE [None]
  - INJECTION SITE PAIN [None]
  - BONE PAIN [None]
  - BALANCE DISORDER [None]
  - DIZZINESS [None]
  - AMMONIA [None]
  - HYPERSENSITIVITY [None]
  - ASTHENIA [None]
  - GASTROINTESTINAL DISORDER [None]
